FAERS Safety Report 9811449 (Version 2)
Quarter: 2014Q1

REPORT INFORMATION
  Report Type: Spontaneous
  Country: US (occurrence: US)
  Receive Date: 20140110
  Receipt Date: 20140110
  Transmission Date: 20141002
  Serious: Yes (Hospitalization)
  Sender: FDA-Public Use
  Company Number: US-SANOFI-AVENTIS-2013SA043791

PATIENT
  Age: 60 Year
  Sex: Male

DRUGS (25)
  1. PLAVIX [Suspect]
     Indication: PRODUCT USED FOR UNKNOWN INDICATION
     Route: 065
     Dates: start: 20110401, end: 20130315
  2. COUMADIN [Suspect]
     Indication: PRODUCT USED FOR UNKNOWN INDICATION
     Route: 065
     Dates: start: 20130319
  3. WARFARIN SODIUM [Concomitant]
     Route: 065
     Dates: start: 20130322, end: 20130329
  4. ASPIRIN [Concomitant]
     Route: 065
     Dates: start: 2007, end: 20110331
  5. ASPIRIN [Concomitant]
     Route: 065
     Dates: start: 20110401, end: 20110401
  6. ASPIRIN [Concomitant]
     Route: 065
     Dates: start: 20110402, end: 20130313
  7. TOPROL XL [Concomitant]
     Route: 065
     Dates: start: 20110405, end: 20110419
  8. TOPROL XL [Concomitant]
     Route: 065
     Dates: start: 20110420
  9. VASOTEC [Concomitant]
     Route: 065
     Dates: start: 20110402, end: 201105
  10. CRESTOR [Concomitant]
     Route: 065
     Dates: start: 2008, end: 20110301
  11. ZOCOR [Concomitant]
     Route: 065
     Dates: start: 20110302, end: 20110401
  12. ZOCOR [Concomitant]
     Route: 065
     Dates: start: 20110402, end: 20110419
  13. ZOCOR [Concomitant]
     Route: 065
     Dates: start: 20110420, end: 201206
  14. METFORMIN [Concomitant]
     Route: 065
     Dates: start: 2007
  15. GLYCERYL TRINITRATE [Concomitant]
     Route: 065
     Dates: start: 20110401
  16. HERBAL PREPARATION [Concomitant]
     Route: 065
     Dates: start: 2003
  17. GALENIC /HYDROCODONE HCL/PARACETAMOL/ [Concomitant]
     Dosage: DOSE: 10/325 MG
     Route: 065
     Dates: start: 20110420, end: 201105
  18. LORAZEPAM [Concomitant]
     Route: 065
     Dates: start: 20110420, end: 201105
  19. LORAZEPAM [Concomitant]
     Route: 065
     Dates: start: 20110321, end: 20130601
  20. GLIPIZIDE [Concomitant]
     Route: 065
     Dates: start: 20110719
  21. LISINOPRIL [Concomitant]
     Route: 065
     Dates: start: 20110928
  22. SIMVASTATIN [Concomitant]
     Route: 065
     Dates: start: 201206
  23. HYDROMORPHONE [Concomitant]
     Route: 065
     Dates: start: 20130321, end: 20130601
  24. DOCUSATE SODIUM [Concomitant]
     Route: 065
     Dates: start: 20130321
  25. PANTOPRAZOLE [Concomitant]
     Route: 065
     Dates: start: 20130327

REACTIONS (2)
  - Gastrointestinal haemorrhage [Recovered/Resolved]
  - Osteoarthritis [Recovered/Resolved]
